FAERS Safety Report 25680628 (Version 1)
Quarter: 2025Q3

REPORT INFORMATION
  Report Type: Spontaneous
  Country: US (occurrence: US)
  Receive Date: 20250814
  Receipt Date: 20250814
  Transmission Date: 20251020
  Serious: No
  Sender: CSL BEHRING
  Company Number: US-BEH-2025215537

PATIENT
  Sex: Female

DRUGS (5)
  1. HIZENTRA [Suspect]
     Active Substance: HUMAN IMMUNOGLOBULIN G
     Indication: Immunodeficiency common variable
     Dosage: 8 G (40ML), TWICE FOR ONE WEEK
     Route: 058
     Dates: start: 202507
  2. HIZENTRA [Suspect]
     Active Substance: HUMAN IMMUNOGLOBULIN G
     Indication: Immunodeficiency common variable
     Dosage: 8 G (40ML), TWICE FOR ONE WEEK
     Route: 058
     Dates: start: 202507
  3. HIZENTRA [Suspect]
     Active Substance: HUMAN IMMUNOGLOBULIN G
     Dosage: 8 G (40ML), TWICE FOR ONE WEEK
     Route: 058
     Dates: start: 2025
  4. HIZENTRA [Suspect]
     Active Substance: HUMAN IMMUNOGLOBULIN G
     Dosage: 8 G (40ML), TWICE FOR ONE WEEK
     Route: 058
     Dates: start: 2025
  5. EPINEPHRINE [Concomitant]
     Active Substance: EPINEPHRINE

REACTIONS (1)
  - Infusion site haemorrhage [Unknown]

NARRATIVE: CASE EVENT DATE: 20250101
